FAERS Safety Report 4607726-5 (Version None)
Quarter: 2005Q1

REPORT INFORMATION
  Report Type: 
  Country: None (occurrence: None)
  Receive Date: 20050314
  Receipt Date: 20050301
  Transmission Date: 20050727
  Serious: Yes (Congenital Anomaly)
  Sender: FDA-Public Use
  Company Number: FR-ROCHE-397157

PATIENT
  Age: 38 Year
  Sex: Female

DRUGS (9)
  1. ANEXATE [Suspect]
     Dosage: INDICATION: NEUTRALISATION OF EFFECTS OF BENZODIAZEPINES.
     Route: 042
     Dates: start: 20040627
  2. CLOPIXOL [Suspect]
     Indication: DRUG USE FOR UNKNOWN INDICATION
     Route: 048
     Dates: start: 20040627, end: 20040627
  3. CLOPIXOL [Suspect]
     Route: 048
  4. CLAMOXYL [Suspect]
     Route: 048
     Dates: start: 20040627, end: 20040711
  5. LYSANXIA [Suspect]
     Indication: DRUG USE FOR UNKNOWN INDICATION
     Dosage: DOSE TAKEN IN SUICIDE ATTEMPT.
     Route: 048
     Dates: start: 20040627, end: 20040627
  6. LYSANXIA [Suspect]
     Route: 048
  7. ERYTHROCINE [Suspect]
     Route: 048
     Dates: start: 20040627, end: 20040711
  8. NORSET [Suspect]
     Indication: DRUG USE FOR UNKNOWN INDICATION
     Dosage: DOSE TAKEN IN SUICIDE ATTEMPT.
     Route: 048
     Dates: start: 20040627, end: 20040627
  9. NORSET [Suspect]
     Route: 048

REACTIONS (6)
  - ABORTION INDUCED [None]
  - CONGENITAL DIAPHRAGMATIC HERNIA [None]
  - CYSTIC LYMPHANGIOMA [None]
  - DRUG EXPOSURE DURING PREGNANCY [None]
  - HEART DISEASE CONGENITAL [None]
  - RENAL CYST [None]
